FAERS Safety Report 8598879-5 (Version None)
Quarter: 2012Q3

REPORT INFORMATION
  Report Type: 
  Country: None (occurrence: None)
  Receive Date: 20120816
  Receipt Date: 20120807
  Transmission Date: 20120928
  Serious: Yes (Other)
  Sender: FDA-Public Use
  Company Number: JP-PFIZER INC-2012187695

PATIENT
  Age: 25 Year
  Sex: Female

DRUGS (2)
  1. CEFOTIAM HYDROCHLORIDE [Concomitant]
     Indication: PYELONEPHRITIS
  2. AMPICILLIN SODIUM/SULBACTAM SODIUM [Suspect]
     Indication: ENTEROCOCCAL INFECTION
     Dosage: 0.75 G VIAL

REACTIONS (2)
  - RASH [None]
  - RENAL ABSCESS [None]
